FAERS Safety Report 8718834 (Version 2)
Quarter: 2012Q4

REPORT INFORMATION
  Report Type: 
  Country: ES (occurrence: ES)
  Receive Date: 20120810
  Receipt Date: 20120924
  Transmission Date: 20130627
  Serious: Yes (Other)
  Sender: FDA-Public Use
  Company Number: ES-ALLERGAN-1210618US

PATIENT
  Age: 74 Year
  Sex: Male

DRUGS (1)
  1. OZURDEX [Suspect]
     Indication: MACULAR EDEMA
     Dosage: 0.7 mg, single
     Route: 031

REACTIONS (4)
  - Visual acuity reduced [Recovering/Resolving]
  - Corneal oedema [Recovered/Resolved]
  - Intraocular pressure increased [Recovered/Resolved]
  - Device dislocation [Unknown]
